FAERS Safety Report 24785567 (Version 1)
Quarter: 2024Q4

REPORT INFORMATION
  Report Type: Spontaneous
  Country: US (occurrence: None)
  Receive Date: 20241227
  Receipt Date: 20241227
  Transmission Date: 20250115
  Serious: Yes (Hospitalization)
  Sender: Public
  Company Number: None

PATIENT
  Age: 64 Year
  Sex: Female
  Weight: 54.3 kg

DRUGS (1)
  1. IMDELLTRA (AMG757) [Suspect]
     Active Substance: TARLATAMAB
     Indication: Small cell lung cancer
     Dates: start: 20241114

REACTIONS (1)
  - Cytokine release syndrome [None]

NARRATIVE: CASE EVENT DATE: 20241119
